FAERS Safety Report 9068437 (Version 1)
Quarter: 2013Q1

REPORT INFORMATION
  Report Type: Spontaneous
  Country: US (occurrence: US)
  Receive Date: 20130128
  Receipt Date: 20130128
  Transmission Date: 20140127
  Serious: Yes (Death)
  Sender: FDA-Public Use
  Company Number: PHHY2013US006686

PATIENT
  Age: 74 Year
  Sex: Female

DRUGS (5)
  1. METOPROLOL [Suspect]
     Dosage: UNK UKN, UNK
  2. WARFARIN [Suspect]
     Dosage: UNK UKN, UNK
  3. DILTIAZEM [Suspect]
     Dosage: UNK UKN, UNK
  4. DABIGATRAN [Suspect]
     Dosage: UNK UKN, UNK
  5. UNSPECIFIED [Suspect]
     Dosage: UNK UKN, UNK

REACTIONS (1)
  - Death [Fatal]
